FAERS Safety Report 8509062-3 (Version None)
Quarter: 2012Q3

REPORT INFORMATION
  Report Type: 
  Country: None (occurrence: None)
  Receive Date: 20120702
  Receipt Date: 20120620
  Transmission Date: 20120928
  Serious: Yes (Hospitalization)
  Sender: FDA-Public Use
  Company Number: 2012SP034576

PATIENT
  Age: 69 Year
  Sex: Female
  Weight: 78 kg

DRUGS (16)
  1. ANTEBATE [Concomitant]
  2. MOTILIUM [Concomitant]
  3. LOXONIN [Concomitant]
  4. DOGMATYL [Concomitant]
  5. EPADEL S [Concomitant]
  6. ALLEGRA [Concomitant]
  7. PEG-INTRON [Suspect]
     Indication: HEPATITIS C
     Dosage: 1.5 MCG/KG'QW'SC; 1.2 MCG/KG;QW;SC; 1.0 MCG/KG;QW;SC, 70 MCG;QW;SC
     Route: 058
     Dates: start: 20120223, end: 20120229
  8. PEG-INTRON [Suspect]
     Indication: HEPATITIS C
     Dosage: 1.5 MCG/KG'QW'SC; 1.2 MCG/KG;QW;SC; 1.0 MCG/KG;QW;SC, 70 MCG;QW;SC
     Route: 058
     Dates: start: 20120329
  9. PEG-INTRON [Suspect]
     Indication: HEPATITIS C
     Dosage: 1.5 MCG/KG'QW'SC; 1.2 MCG/KG;QW;SC; 1.0 MCG/KG;QW;SC, 70 MCG;QW;SC
     Route: 058
     Dates: start: 20120301, end: 20120328
  10. REBETOL [Suspect]
     Indication: HEPATITIS C
     Dosage: 800 MG;QD;PO, 600 MG;QD;PO, 200 MG;QD;PO, 200 MG;UNK, PO
     Route: 048
     Dates: start: 20120426
  11. REBETOL [Suspect]
     Indication: HEPATITIS C
     Dosage: 800 MG;QD;PO, 600 MG;QD;PO, 200 MG;QD;PO, 200 MG;UNK, PO
     Route: 048
     Dates: start: 20120315, end: 20120425
  12. REBETOL [Suspect]
     Indication: HEPATITIS C
     Dosage: 800 MG;QD;PO, 600 MG;QD;PO, 200 MG;QD;PO, 200 MG;UNK, PO
     Route: 048
     Dates: start: 20120223, end: 20120307
  13. REBETOL [Suspect]
     Indication: HEPATITIS C
     Dosage: 800 MG;QD;PO, 600 MG;QD;PO, 200 MG;QD;PO, 200 MG;UNK, PO
     Route: 048
     Dates: start: 20120308, end: 20120314
  14. FEBURIC [Concomitant]
  15. TELAVIC (ANTIVIRALS NOS) [Suspect]
     Indication: HEPATITIS C
     Dosage: 2250 MG;QD;PO, 1500 MG;QD;PO
     Route: 048
     Dates: start: 20120412
  16. TELAVIC (ANTIVIRALS NOS) [Suspect]
     Indication: HEPATITIS C
     Dosage: 2250 MG;QD;PO, 1500 MG;QD;PO
     Route: 048
     Dates: start: 20120223, end: 20120411

REACTIONS (7)
  - VOMITING [None]
  - PLATELET COUNT DECREASED [None]
  - HAEMOGLOBIN DECREASED [None]
  - NAUSEA [None]
  - ERYTHEMA [None]
  - BRONCHITIS [None]
  - RASH [None]
